FAERS Safety Report 6491766-8 (Version None)
Quarter: 2009Q4

REPORT INFORMATION
  Report Type: 
  Country: None (occurrence: None)
  Receive Date: 20091211
  Receipt Date: 20091207
  Transmission Date: 20100525
  Serious: Yes (Life-Threatening, Hospitalization)
  Sender: FDA-Public Use
  Company Number: DE-B.I. PHARMACEUTICALS,INC./RIDGEFIELD-2009-DE-03852DE

PATIENT
  Sex: Male
  Weight: 65 kg

DRUGS (5)
  1. VIRAMUNE [Suspect]
     Indication: HIV INFECTION
     Dosage: 1 ANZ
     Route: 048
     Dates: start: 20090423
  2. VIRAMUNE [Suspect]
     Dosage: 2 ANZ
     Route: 048
     Dates: start: 20090507
  3. TRUVADA [Concomitant]
     Indication: HIV INFECTION
     Dosage: 1 ANZ
     Route: 048
     Dates: start: 20090423
  4. STILNOX [Concomitant]
     Indication: SLEEP DISORDER
     Dosage: 1 ANZ
     Route: 048
  5. RIVOTRIL 2 MG [Concomitant]
     Indication: DEPRESSION
     Dosage: 1 ANZ
     Route: 048

REACTIONS (4)
  - HEPATIC ENZYME INCREASED [None]
  - JAUNDICE [None]
  - NAUSEA [None]
  - VOMITING [None]
